FAERS Safety Report 8865627 (Version 1)
Quarter: 2012Q4

REPORT INFORMATION
  Report Type: 
  Country: US (occurrence: US)
  Receive Date: 20121024
  Receipt Date: 20121024
  Transmission Date: 20130627
  Serious: No
  Sender: FDA-Public Use
  Company Number: US-AMGEN-USASP2012003995

PATIENT
  Sex: Male

DRUGS (6)
  1. ENBREL [Suspect]
     Indication: PRODUCT USED FOR UNKNOWN INDICATION
     Dosage: 50 mg, qwk
     Route: 058
  2. WARFARIN [Concomitant]
     Dosage: 1 mg, UNK
  3. METOPROLOL [Concomitant]
     Dosage: 25 mg, UNK
  4. ZOCOR [Concomitant]
     Dosage: 5 mg, UNK
  5. LISINOPRIL [Concomitant]
     Dosage: 20 mg, UNK
  6. SIMVASTATIN [Concomitant]
     Dosage: 20 mg, UNK

REACTIONS (6)
  - Chills [Recovered/Resolved]
  - Headache [Not Recovered/Not Resolved]
  - Joint warmth [Recovered/Resolved]
  - Arthralgia [Unknown]
  - Joint stiffness [Unknown]
  - Pain in extremity [Unknown]
